FAERS Safety Report 22004416 (Version 3)
Quarter: 2023Q2

REPORT INFORMATION
  Report Type: Spontaneous
  Country: US (occurrence: US)
  Receive Date: 20230217
  Receipt Date: 20230411
  Transmission Date: 20230722
  Serious: No
  Sender: FDA-Public Use
  Company Number: US-UNITED THERAPEUTICS-UNT-2023-003980

PATIENT
  Age: 56 Year
  Sex: Female
  Weight: 75.737 kg

DRUGS (8)
  1. REMODULIN [Suspect]
     Active Substance: TREPROSTINIL
     Indication: Pulmonary arterial hypertension
     Dosage: 0.033 ?G/KG, CONTINUING (PHARMACY FILLED WITH 3 ML PER CASSETTE, AT A RATE OF 35 MCL PER HOUR)
     Route: 058
  2. REMODULIN [Suspect]
     Active Substance: TREPROSTINIL
     Dosage: 0.035 ?G/KG, CONTINUING (PHARMACY FILLED WITH 3 ML PER CASSETTE, AT A RATE OF 37 MCL PER HOUR)
     Route: 058
     Dates: start: 202302
  3. REMODULIN [Suspect]
     Active Substance: TREPROSTINIL
     Dosage: UNK, CONTINUING
     Route: 058
     Dates: start: 20230202
  4. REMODULIN [Suspect]
     Active Substance: TREPROSTINIL
     Indication: Pulmonary arterial hypertension
     Dosage: 0.043 ?G/KG, CONTINUING (PHARMACY PRE-FILLED WITH 2.4 ML/CASSETTE, PUMP RATE OF 23 MCL/HOUR)
     Route: 058
  5. REMODULIN [Suspect]
     Active Substance: TREPROSTINIL
     Dosage: 0.045 ?G/KG (PHARMACY PRE-FILLED WITH 2.4 ML PER CASSETTE; PUMP RATE OF 24 MCL/HOUR), CONTINUING
     Route: 058
  6. REMODULIN [Suspect]
     Active Substance: TREPROSTINIL
     Dosage: UNK, CONTINUING
     Route: 058
  7. WARFARIN SODIUM [Concomitant]
     Active Substance: WARFARIN SODIUM
     Indication: Product used for unknown indication
     Dosage: UNK
     Route: 065
  8. VELETRI [Concomitant]
     Active Substance: EPOPROSTENOL
     Indication: Product used for unknown indication
     Dosage: UNK
     Route: 065

REACTIONS (8)
  - Headache [Unknown]
  - Fall [Recovered/Resolved with Sequelae]
  - Pain in jaw [Unknown]
  - Flushing [Unknown]
  - Infusion site erythema [Unknown]
  - Infusion site warmth [Recovering/Resolving]
  - Meniscus injury [Unknown]
  - Infusion site pain [Unknown]

NARRATIVE: CASE EVENT DATE: 20230201
